FAERS Safety Report 9096389 (Version 1)
Quarter: 2013Q1

REPORT INFORMATION
  Report Type: Spontaneous
  Country: US (occurrence: None)
  Receive Date: 20130122
  Receipt Date: 20130122
  Transmission Date: 20140127
  Serious: Yes (Death)
  Sender: FDA-Public Use
  Company Number: 2013POI058000062

PATIENT
  Age: 48 Year
  Sex: Female

DRUGS (10)
  1. OXYCODONE HCL [Suspect]
     Route: 048
     Dates: end: 2011
  2. PROPRANOLOL [Suspect]
     Route: 048
     Dates: end: 2011
  3. TRAZODONE [Suspect]
     Route: 048
     Dates: end: 2011
  4. CLONAZEPAM [Concomitant]
     Route: 048
     Dates: end: 2011
  5. HYDROXYZINE [Suspect]
     Route: 048
     Dates: end: 2011
  6. RISPERIDONE [Suspect]
     Route: 048
     Dates: end: 2011
  7. TEMAZEPAM [Suspect]
     Route: 048
     Dates: end: 2011
  8. BENZTROPINE [Suspect]
     Route: 048
     Dates: end: 2011
  9. ESCITALOPRAM [Suspect]
     Route: 048
     Dates: end: 2011
  10. ONDANSETRON [Suspect]
     Route: 048
     Dates: end: 2011

REACTIONS (3)
  - Respiratory arrest [None]
  - Cardiac arrest [None]
  - Completed suicide [None]
